FAERS Safety Report 19162683 (Version 1)
Quarter: 2021Q2

REPORT INFORMATION
  Report Type: Spontaneous
  Country: FR (occurrence: FR)
  Receive Date: 20210421
  Receipt Date: 20210421
  Transmission Date: 20210717
  Serious: Yes (Hospitalization, Other)
  Sender: FDA-Public Use
  Company Number: FR-JIANGSU HENGRUI MEDICINE CO., LTD.-2109556

PATIENT
  Age: 62 Year
  Sex: Male
  Weight: 120 kg

DRUGS (11)
  1. ATORVASTATINE [Concomitant]
     Active Substance: ATORVASTATIN
  2. YESCARTA [Suspect]
     Active Substance: AXICABTAGENE CILOLEUCEL
     Route: 041
     Dates: start: 20201118, end: 20201118
  3. FLUDARABINE PHOSPHATE. [Suspect]
     Active Substance: FLUDARABINE PHOSPHATE
     Route: 041
     Dates: start: 20201113, end: 20201115
  4. BACTRIM [Concomitant]
     Active Substance: SULFAMETHOXAZOLE\TRIMETHOPRIM
  5. KARDEGIC [Concomitant]
     Active Substance: ASPIRIN DL-LYSINE
  6. PARACETAMOL ACTAVIS [Concomitant]
     Active Substance: ACETAMINOPHEN
  7. ELIQUIS [Concomitant]
     Active Substance: APIXABAN
  8. CYCLOPHOSPHAMIDE FOR INJECTION USP, 500 MG, 1 G AND 2 G PER SINGLE?DOS [Suspect]
     Active Substance: CYCLOPHOSPHAMIDE
     Indication: BONE MARROW CONDITIONING REGIMEN
     Route: 041
     Dates: start: 20201113, end: 20201115
  9. VERAPAMIL CLORHIDRAT [Concomitant]
  10. SPECIAFOLDINE [Concomitant]
     Active Substance: FOLIC ACID
  11. VALACICLOVIR [Concomitant]
     Active Substance: VALACYCLOVIR HYDROCHLORIDE

REACTIONS (2)
  - Pancytopenia [Recovering/Resolving]
  - Cytokine release syndrome [Recovered/Resolved]

NARRATIVE: CASE EVENT DATE: 20201119
